FAERS Safety Report 24779296 (Version 2)
Quarter: 2025Q1

REPORT INFORMATION
  Report Type: Spontaneous
  Country: US (occurrence: US)
  Receive Date: 20241226
  Receipt Date: 20250103
  Transmission Date: 20250409
  Serious: Yes (Life-Threatening, Hospitalization, Other)
  Sender: PFIZER
  Company Number: US-MLMSERVICE-20241213-PI300577-00331-1

PATIENT
  Age: 34 Year
  Sex: Male

DRUGS (2)
  1. VERAPAMIL HCL [Suspect]
     Active Substance: VERAPAMIL HYDROCHLORIDE
     Indication: Hypertrophic cardiomyopathy
     Dosage: 180 MG, 2X/DAY(INITIATED AND RECENTLY INCREASED DOSE )
  2. METOPROLOL SUCCINATE [Concomitant]
     Active Substance: METOPROLOL SUCCINATE
     Indication: Hypertrophic cardiomyopathy
     Dosage: 50 MG, 2X/DAY

REACTIONS (8)
  - Cardiogenic shock [Recovering/Resolving]
  - Negative cardiac inotropic effect [Recovering/Resolving]
  - Haemodynamic instability [Recovering/Resolving]
  - Bradycardia [Recovering/Resolving]
  - Renal impairment [Recovered/Resolved]
  - Hyperkalaemia [Recovering/Resolving]
  - Respiratory distress [Unknown]
  - Hypotension [Recovering/Resolving]
